FAERS Safety Report 6549079-1 (Version None)
Quarter: 2010Q1

REPORT INFORMATION
  Report Type: 
  Country: None (occurrence: None)
  Receive Date: 20100119
  Receipt Date: 20100104
  Transmission Date: 20100710
  Serious: Yes (Life-Threatening, Hospitalization)
  Sender: FDA-Public Use
  Company Number: 2009-04605

PATIENT
  Age: 56 Year
  Sex: Female

DRUGS (12)
  1. VELCADE [Suspect]
     Indication: MULTIPLE MYELOMA
     Dosage: 1.3 MG/M2, INTRAVENOUS
     Route: 042
     Dates: start: 20081118, end: 20081121
  2. TANESPIMYCIN (TANESPIMYCIN) [Suspect]
     Indication: MULTIPLE MYELOMA
     Dosage: 340 MG/M2, INTRAVENOUS
     Route: 042
     Dates: start: 20081118, end: 20081121
  3. SYNTHROID [Concomitant]
  4. SIMVASTATIN [Concomitant]
  5. PAROXETINE HCL [Concomitant]
  6. LISINOPRIL [Concomitant]
  7. AROMASIN [Concomitant]
  8. CALCIUM EITH VITAMIN D (ERGOCALCIFEROL, CALICIUM SODIUM LACTATE, CALCI [Concomitant]
  9. WITAMIN D (ERGOCALCIFEROL) [Concomitant]
  10. FISH OIL (FISH OIL) [Concomitant]
  11. ASPIRIN [Concomitant]
  12. KYTRIL [Concomitant]

REACTIONS (7)
  - ALANINE AMINOTRANSFERASE INCREASED [None]
  - ASPARTATE AMINOTRANSFERASE INCREASED [None]
  - BLOOD LACTATE DEHYDROGENASE INCREASED [None]
  - DEHYDRATION [None]
  - HEPATOTOXICITY [None]
  - NAUSEA [None]
  - VOMITING [None]
